FAERS Safety Report 23096294 (Version 1)
Quarter: 2023Q4

REPORT INFORMATION
  Report Type: Spontaneous
  Country: US (occurrence: None)
  Receive Date: 20231019
  Receipt Date: 20231019
  Transmission Date: 20240110
  Serious: Yes (Hospitalization)
  Sender: FDA-Public Use
  Company Number: None

PATIENT
  Sex: Female

DRUGS (7)
  1. ENVARSUS XR [Suspect]
     Active Substance: TACROLIMUS
     Indication: Liver transplant
     Dosage: FREQUENCY : DAILY;?
     Route: 048
     Dates: start: 20230503
  2. ENVARSUS XR [Suspect]
     Active Substance: TACROLIMUS
     Dosage: FREQUENCY : DAILY;?
     Route: 048
  3. FERROUS SULFATE [Concomitant]
     Active Substance: FERROUS SULFATE
  4. MAGNESIUM SU [Concomitant]
  5. NURTEC [Concomitant]
  6. TACROLIMUS [Concomitant]
     Active Substance: TACROLIMUS
  7. VITAMIN D3 [Concomitant]
     Active Substance: CHOLECALCIFEROL

REACTIONS (4)
  - Pyrexia [None]
  - Constipation [None]
  - Headache [None]
  - Red blood cell count decreased [None]
